FAERS Safety Report 4609153-3 (Version None)
Quarter: 2005Q1

REPORT INFORMATION
  Report Type: 
  Country: None (occurrence: None)
  Receive Date: 20050311
  Receipt Date: 20050302
  Transmission Date: 20050727
  Serious: Yes (Hospitalization, Other)
  Sender: FDA-Public Use
  Company Number: 2005040276

PATIENT
  Age: 64 Year
  Sex: Female
  Weight: 83.9154 kg

DRUGS (6)
  1. CELEBREX [Suspect]
     Indication: ARTHRITIS
     Dosage: 400 MG (200 MG, 2 IN 1 D), ORAL
     Route: 048
     Dates: start: 20010101
  2. GLIPIZIDE [Concomitant]
  3. AMLODIPINE BESILATE (AMLODIIPINE BESILATE) [Concomitant]
  4. ATENOLOL [Concomitant]
  5. BACLOFEN [Concomitant]
  6. ACETAMINOPHEN [Concomitant]

REACTIONS (4)
  - DIFFICULTY IN WALKING [None]
  - FALL [None]
  - PATELLA FRACTURE [None]
  - POSTOPERATIVE INFECTION [None]
